FAERS Safety Report 6309909-5 (Version None)
Quarter: 2009Q3

REPORT INFORMATION
  Report Type: 
  Country: None (occurrence: None)
  Receive Date: 20090814
  Receipt Date: 20090805
  Transmission Date: 20100115
  Serious: Yes (Other)
  Sender: FDA-Public Use
  Company Number: A0800574A

PATIENT
  Age: 50 Year
  Sex: Male

DRUGS (3)
  1. PAXIL [Suspect]
     Indication: DEPRESSION
     Route: 065
  2. SEROQUEL [Suspect]
     Indication: DRUG USE FOR UNKNOWN INDICATION
     Dosage: 100MG PER DAY
     Route: 065
  3. MIRTAZAPINE [Concomitant]
     Indication: DRUG USE FOR UNKNOWN INDICATION
     Dosage: 30MG PER DAY
     Route: 065

REACTIONS (6)
  - COORDINATION ABNORMAL [None]
  - FEELING ABNORMAL [None]
  - HANGOVER [None]
  - INSOMNIA [None]
  - LOSS OF CONSCIOUSNESS [None]
  - QUALITY OF LIFE DECREASED [None]
